FAERS Safety Report 5646015-7 (Version None)
Quarter: 2008Q1

REPORT INFORMATION
  Report Type: 
  Country: None (occurrence: None)
  Receive Date: 20080229
  Receipt Date: 20080219
  Transmission Date: 20080703
  Serious: Yes (Other)
  Sender: FDA-Public Use
  Company Number: GB-PFIZER INC-2008015979

PATIENT
  Age: 7 Year
  Sex: Male
  Weight: 23 kg

DRUGS (2)
  1. VORICONAZOLE [Suspect]
     Indication: BRONCHOPULMONARY ASPERGILLOSIS
     Route: 048
     Dates: start: 20070523, end: 20070601
  2. PREDNISOLONE [Concomitant]
     Dosage: DAILY DOSE:40MG
     Route: 048

REACTIONS (2)
  - PSEUDOPORPHYRIA [None]
  - SUNBURN [None]
